FAERS Safety Report 10920651 (Version 1)
Quarter: 2015Q1

REPORT INFORMATION
  Report Type: Spontaneous
  Country: US (occurrence: None)
  Receive Date: 20150313
  Receipt Date: 20150313
  Transmission Date: 20150721
  Serious: Yes (Disabling)
  Sender: FDA-Public Use
  Company Number: None

PATIENT
  Age: 43 Year
  Sex: Female
  Weight: 59.88 kg

DRUGS (2)
  1. MULTIVITAMIN [Concomitant]
     Active Substance: VITAMINS
  2. CIPRO [Suspect]
     Active Substance: CIPROFLOXACIN HYDROCHLORIDE
     Indication: COLITIS
     Dosage: 1 PILL
     Route: 048
     Dates: start: 20140818, end: 20140820

REACTIONS (17)
  - Neuropathy peripheral [None]
  - Suicidal ideation [None]
  - Skin warm [None]
  - Anxiety [None]
  - Depression [None]
  - Gait disturbance [None]
  - Paraesthesia [None]
  - Wheelchair user [None]
  - Musculoskeletal disorder [None]
  - Tunnel vision [None]
  - Cognitive disorder [None]
  - Tendon disorder [None]
  - Depressed level of consciousness [None]
  - Tinnitus [None]
  - Fatigue [None]
  - Feeling hot [None]
  - Photophobia [None]

NARRATIVE: CASE EVENT DATE: 20140818
